FAERS Safety Report 12224193 (Version 2)
Quarter: 2016Q2

REPORT INFORMATION
  Report Type: Spontaneous
  Country: IT (occurrence: DE)
  Receive Date: 20160330
  Receipt Date: 20160413
  Transmission Date: 20160815
  Serious: Yes (Other)
  Sender: FDA-Public Use
  Company Number: DE-FRI-1000083587

PATIENT
  Age: 48 Year
  Sex: Female

DRUGS (1)
  1. MONUROL [Suspect]
     Active Substance: FOSFOMYCIN TROMETHAMINE
     Indication: URINARY TRACT INFECTION
     Dosage: 1 DF
     Route: 048
     Dates: start: 201510

REACTIONS (4)
  - Vitreous floaters [Not Recovered/Not Resolved]
  - Optic neuritis [Not Recovered/Not Resolved]
  - Product use issue [Recovered/Resolved]
  - Visual evoked potentials abnormal [Not Recovered/Not Resolved]

NARRATIVE: CASE EVENT DATE: 201512
